FAERS Safety Report 24192159 (Version 2)
Quarter: 2024Q3

REPORT INFORMATION
  Report Type: Report from Study
  Country: CA (occurrence: CA)
  Receive Date: 20240809
  Receipt Date: 20240827
  Transmission Date: 20241016
  Serious: Yes (Other)
  Sender: JOHNSON AND JOHNSON
  Company Number: CA-JNJFOC-20230313402

PATIENT
  Age: 11 Year
  Sex: Male
  Weight: 30 kg

DRUGS (3)
  1. REMICADE [Suspect]
     Active Substance: INFLIXIMAB
     Indication: Crohn^s disease
     Dosage: 5 MG/KG ROUNDED UP TO COMPLETE THE VIAL AT WEEKS 0,2,6 THEN EVERY 6 WEEKS
     Route: 041
     Dates: start: 20230321
  2. REMICADE [Suspect]
     Active Substance: INFLIXIMAB
     Dosage: 5 MG/KG ROUNDED UP TO COMPLETE THE VIAL AT WEEKS 0,2,6 THEN EVERY 6 WEEKS
     Route: 041
     Dates: start: 20230321
  3. REMICADE [Suspect]
     Active Substance: INFLIXIMAB
     Route: 041

REACTIONS (2)
  - Crohn^s disease [Recovered/Resolved]
  - Off label use [Unknown]

NARRATIVE: CASE EVENT DATE: 20230321
